FAERS Safety Report 11032521 (Version 1)
Quarter: 2015Q2

REPORT INFORMATION
  Report Type: Spontaneous
  Country: US (occurrence: US)
  Receive Date: 20150415
  Receipt Date: 20150415
  Transmission Date: 20150821
  Serious: No
  Sender: FDA-Public Use
  Company Number: US-ASTRAZENECA-2015SE32565

PATIENT
  Sex: Female
  Weight: 68 kg

DRUGS (7)
  1. RHINOCORT AQUA [Suspect]
     Active Substance: BUDESONIDE
     Indication: NASAL CONGESTION
     Dosage: 32 UG, AS REQUIRED GENERIC
     Route: 045
     Dates: start: 20150402
  2. PRILOSEC [Suspect]
     Active Substance: OMEPRAZOLE MAGNESIUM
     Indication: GASTROOESOPHAGEAL REFLUX DISEASE
     Route: 048
     Dates: start: 2014
  3. RHINOCORT AQUA [Suspect]
     Active Substance: BUDESONIDE
     Indication: SINUS OPERATION
     Dosage: 32 UG, AS REQUIRED GENERIC
     Route: 045
     Dates: start: 20150402
  4. RHINOCORT AQUA [Suspect]
     Active Substance: BUDESONIDE
     Indication: NASAL CONGESTION
     Dosage: 32 UG, 1 TO 2 SPRAYS DAILY PER NOSTRIL AS NEEDED
     Route: 045
  5. RHINOCORT AQUA [Suspect]
     Active Substance: BUDESONIDE
     Indication: SINUS OPERATION
     Dosage: 32 UG, 1 TO 2 SPRAYS DAILY PER NOSTRIL AS NEEDED
     Route: 045
  6. PRILOSEC [Suspect]
     Active Substance: OMEPRAZOLE MAGNESIUM
     Indication: GASTROOESOPHAGEAL REFLUX DISEASE
     Route: 048
  7. LEXAPRO [Concomitant]
     Active Substance: ESCITALOPRAM OXALATE
     Indication: ANXIETY
     Route: 048

REACTIONS (3)
  - Dyspepsia [Unknown]
  - Oesophageal pain [Unknown]
  - Product use issue [Unknown]
